FAERS Safety Report 5115438-7 (Version None)
Quarter: 2006Q3

REPORT INFORMATION
  Report Type: 
  Country: None (occurrence: None)
  Receive Date: 20060922
  Receipt Date: 20060912
  Transmission Date: 20061208
  Serious: Yes (Death, Hospitalization)
  Sender: FDA-Public Use
  Company Number: 2006111391

PATIENT
  Age: 54 Year
  Sex: Female
  Weight: 59 kg

DRUGS (6)
  1. IRINOTECAN HCL [Suspect]
     Dosage: 150 MG (150 MG,1 IN 1 D), INTRAVENOUS
     Route: 042
     Dates: start: 20060724, end: 20060724
  2. LEUCOVORIN CALCIUM [Suspect]
     Dosage: 100 MG, INTRAVENOUS
     Route: 042
     Dates: start: 20060724, end: 20060725
  3. ONDANSETRON [Suspect]
     Dosage: 8 MG, INTRAVENOUS
     Route: 042
     Dates: start: 20060724, end: 20060726
  4. AVASTIN [Suspect]
     Dosage: 5 MG (5 MG,1 IN 1 D), INTRAVENOUS
     Route: 042
     Dates: start: 20060726, end: 20060726
  5. ATROPINE SULFATE [Suspect]
     Dosage: 0.25 MG (0.25 MG,1 IN 1 D), SUBCUTANEOUS
     Route: 058
     Dates: start: 20060724, end: 20060724
  6. FLUOROURACIL [Suspect]
     Dosage: INTRAVENOUS
     Route: 042
     Dates: start: 20060724, end: 20060725

REACTIONS (2)
  - BLOOD LACTATE DEHYDROGENASE INCREASED [None]
  - RENAL FAILURE ACUTE [None]
